FAERS Safety Report 20177192 (Version 3)
Quarter: 2022Q3

REPORT INFORMATION
  Report Type: Report from Study
  Country: US (occurrence: US)
  Receive Date: 20211213
  Receipt Date: 20220811
  Transmission Date: 20221026
  Serious: Yes (Death, Hospitalization, Other)
  Sender: FDA-Public Use
  Company Number: US-TAKEDA-2021TUS078346

PATIENT
  Age: 50 Year
  Sex: Female

DRUGS (8)
  1. TEDUGLUTIDE [Suspect]
     Active Substance: TEDUGLUTIDE
     Indication: Product used for unknown indication
     Dosage: UNK UNK, QD
     Route: 058
     Dates: start: 20210713
  2. TEDUGLUTIDE [Suspect]
     Active Substance: TEDUGLUTIDE
     Indication: Product used for unknown indication
     Dosage: UNK UNK, QD
     Route: 058
     Dates: start: 20210713
  3. TEDUGLUTIDE [Suspect]
     Active Substance: TEDUGLUTIDE
     Indication: Product used for unknown indication
     Dosage: UNK UNK, QD
     Route: 058
     Dates: start: 20210713
  4. TEDUGLUTIDE [Suspect]
     Active Substance: TEDUGLUTIDE
     Indication: Product used for unknown indication
     Dosage: UNK UNK, QD
     Route: 058
     Dates: start: 20210713
  5. TEDUGLUTIDE [Suspect]
     Active Substance: TEDUGLUTIDE
     Dosage: 0.035 DOSAGE FORM, QD
     Route: 058
     Dates: start: 20210713, end: 20220806
  6. TEDUGLUTIDE [Suspect]
     Active Substance: TEDUGLUTIDE
     Dosage: 0.035 DOSAGE FORM, QD
     Route: 058
     Dates: start: 20210713, end: 20220806
  7. TEDUGLUTIDE [Suspect]
     Active Substance: TEDUGLUTIDE
     Dosage: 0.035 DOSAGE FORM, QD
     Route: 058
     Dates: start: 20210713, end: 20220806
  8. TEDUGLUTIDE [Suspect]
     Active Substance: TEDUGLUTIDE
     Dosage: 0.035 DOSAGE FORM, QD
     Route: 058
     Dates: start: 20210713, end: 20220806

REACTIONS (4)
  - Death [Fatal]
  - Pulmonary thrombosis [Recovered/Resolved]
  - Pancreatitis [Unknown]
  - Urinary tract infection [Recovered/Resolved]

NARRATIVE: CASE EVENT DATE: 20211122
